FAERS Safety Report 22055143 (Version 1)
Quarter: 2023Q1

REPORT INFORMATION
  Report Type: Spontaneous
  Country: US (occurrence: None)
  Receive Date: 20230301
  Receipt Date: 20230301
  Transmission Date: 20230418
  Serious: Yes (Disabling)
  Sender: FDA-Public Use
  Company Number: None

PATIENT
  Age: 53 Year
  Sex: Male
  Weight: 108 kg

DRUGS (9)
  1. OZEMPIC [Suspect]
     Active Substance: SEMAGLUTIDE
     Indication: Diabetes mellitus
     Dosage: FREQUENCY : WEEKLY;?
     Route: 030
     Dates: start: 20210927, end: 20230211
  2. VERAPAMIL [Concomitant]
     Active Substance: VERAPAMIL HYDROCHLORIDE
  3. LOSARTAN [Concomitant]
     Active Substance: LOSARTAN
  4. EMPAGLIFLOZIN [Concomitant]
     Active Substance: EMPAGLIFLOZIN
  5. SERTRALINE [Concomitant]
     Active Substance: SERTRALINE HYDROCHLORIDE
  6. ATORVASTATIN [Concomitant]
     Active Substance: ATORVASTATIN
  7. CALCIUM [Concomitant]
     Active Substance: CALCIUM
  8. NOVOLOG [Concomitant]
     Active Substance: INSULIN ASPART
  9. LANTUS [Concomitant]
     Active Substance: INSULIN GLARGINE

REACTIONS (5)
  - Diarrhoea [None]
  - Vomiting [None]
  - Dehydration [None]
  - Product supply issue [None]
  - Eructation [None]

NARRATIVE: CASE EVENT DATE: 20220306
